FAERS Safety Report 8090004-2 (Version None)
Quarter: 2012Q1

REPORT INFORMATION
  Report Type: 
  Country: None (occurrence: None)
  Receive Date: 20120129
  Receipt Date: 20111004
  Transmission Date: 20120608
  Serious: No
  Sender: FDA-Public Use
  Company Number: US-ABBOTT-11P-163-0860084-00

PATIENT
  Age: 53 Year
  Sex: Female

DRUGS (3)
  1. HUMIRA [Suspect]
     Dosage: DAY 1
     Route: 058
     Dates: start: 20110901
  2. HUMIRA [Suspect]
     Indication: PSORIASIS
     Dates: end: 20110401
  3. HUMIRA [Suspect]
     Dosage: DAY 8 AND 22 AS DIRECTED
     Route: 058

REACTIONS (8)
  - HAEMATOSPERMIA [None]
  - BURNING SENSATION [None]
  - PAIN [None]
  - ERYTHEMA [None]
  - PROSTATE INFECTION [None]
  - RASH [None]
  - NAUSEA [None]
  - FEELING HOT [None]
